FAERS Safety Report 5720476-7 (Version None)
Quarter: 2008Q2

REPORT INFORMATION
  Report Type: 
  Country: None (occurrence: None)
  Receive Date: 20080423
  Receipt Date: 20070416
  Transmission Date: 20081010
  Serious: Yes (Life-Threatening, Hospitalization, Other)
  Sender: FDA-Public Use
  Company Number: 239312

PATIENT
  Age: 71 Year
  Sex: Female
  Weight: 87.1 kg

DRUGS (2)
  1. AVASTIN [Suspect]
     Indication: OVARIAN CANCER
     Dates: start: 20070228
  2. TOPOTECAN (TOPOTECAN HYDROCHLORIDE) [Concomitant]

REACTIONS (1)
  - GASTROINTESTINAL PERFORATION [None]
